FAERS Safety Report 6326729-6 (Version None)
Quarter: 2009Q3

REPORT INFORMATION
  Report Type: 
  Country: None (occurrence: None)
  Receive Date: 20090825
  Receipt Date: 20090820
  Transmission Date: 20100115
  Serious: Yes (Death)
  Sender: FDA-Public Use
  Company Number: PHHY2009JP29012

PATIENT
  Age: 69 Year
  Sex: Male

DRUGS (8)
  1. AMN107 AMN+CAP [Suspect]
     Indication: CHRONIC MYELOID LEUKAEMIA
     Dosage: 400 MG/DAY
     Route: 048
     Dates: start: 20060901, end: 20090301
  2. AMN107 AMN+CAP [Suspect]
     Dosage: 400 MG/DAY
     Route: 048
     Dates: start: 20090414, end: 20090623
  3. MUCOSTA [Concomitant]
     Indication: CHRONIC MYELOID LEUKAEMIA
     Dosage: 300 MG, UNK
     Route: 048
     Dates: start: 20090414, end: 20090623
  4. AMLODIN [Concomitant]
     Dosage: 5 MG, UNK
     Route: 048
     Dates: start: 20090414, end: 20090623
  5. FRANDOL [Concomitant]
     Dosage: 40 MG, UNK
     Dates: start: 20090414, end: 20090623
  6. MEVALOTIN [Concomitant]
     Dosage: 10 MG, UNK
     Dates: start: 20090414, end: 20090623
  7. PELTAZON [Concomitant]
     Dosage: 50 MG, UNK
     Dates: start: 20090414, end: 20090623
  8. AMOBAN [Concomitant]
     Dosage: 7.5 MG, UNK
     Route: 048
     Dates: start: 20090414, end: 20090623

REACTIONS (1)
  - VASCULAR PROCEDURE COMPLICATION [None]
